FAERS Safety Report 9820101 (Version 1)
Quarter: 2013Q4

REPORT INFORMATION
  Report Type: Spontaneous
  Country: GB (occurrence: None)
  Receive Date: 20131017
  Receipt Date: 20131017
  Transmission Date: 20140711
  Serious: Yes (Hospitalization)
  Sender: FDA-Public Use
  Company Number: 2012GMK004525

PATIENT
  Age: 19 Year
  Sex: Female

DRUGS (1)
  1. GABAPENTIN (GABAPENTIN) UNKNOWN [Suspect]
     Indication: NEURALGIA
     Route: 048
     Dates: start: 20120625, end: 20120628

REACTIONS (2)
  - Syncope [None]
  - Convulsion [None]
